FAERS Safety Report 10344774 (Version 3)
Quarter: 2014Q3

REPORT INFORMATION
  Report Type: Spontaneous
  Country: GB (occurrence: None)
  Receive Date: 20140724
  Receipt Date: 20140801
  Transmission Date: 20150326
  Serious: Yes (Other)
  Sender: FDA-Public Use
  Company Number: 2014-20014

PATIENT
  Age: 76 Year
  Sex: Male

DRUGS (9)
  1. AMITRIPTYLINE (AMITRIPTYLINE) [Concomitant]
     Active Substance: AMITRIPTYLINE
  2. HYPROMELLOSE [Concomitant]
     Active Substance: HYPROMELLOSES
  3. ASPIRIN. [Concomitant]
     Active Substance: ASPIRIN
  4. EYLEA [Suspect]
     Active Substance: AFLIBERCEPT
     Indication: DETACHMENT OF RETINAL PIGMENT EPITHELIUM
     Dosage: MONTHLY LOADING DOSE 3 TIMES
  5. BETAHISTINE (BETHAHISTINE) [Concomitant]
  6. AMLODIPINE [Concomitant]
     Active Substance: AMLODIPINE BESYLATE
  7. ATENOLOL (ATENOLOL) [Concomitant]
     Active Substance: ATENOLOL
  8. BENDROFLUMETHIAZIDE (BENDROFLUMETHIAZIDE) [Concomitant]
     Active Substance: BENDROFLUMETHIAZIDE
  9. PROCHLORPERAZINE (PROCHLORPERAZINE) [Concomitant]
     Active Substance: PROCHLORPERAZINE

REACTIONS (2)
  - Visual acuity reduced [None]
  - Retinal haemorrhage [None]

NARRATIVE: CASE EVENT DATE: 20140627
